FAERS Safety Report 8771953 (Version 1)
Quarter: 2012Q4

REPORT INFORMATION
  Report Type: 
  Country: US (occurrence: US)
  Receive Date: 20120905
  Receipt Date: 20120905
  Transmission Date: 20130627
  Serious: Yes (Hospitalization)
  Sender: FDA-Public Use
  Company Number: PHEH2012US017158

PATIENT
  Sex: Female

DRUGS (7)
  1. DIOVAN [Suspect]
     Indication: BLOOD PRESSURE ABNORMAL
     Dosage: 320 mg,
     Route: 048
  2. CARVEDILOL [Concomitant]
     Indication: CARDIAC DISORDER
     Dosage: 6.25 mg, TID
  3. ASPIRINE [Concomitant]
     Dosage: 81 mg, QD
     Route: 048
  4. SIMVASTATIN [Concomitant]
     Indication: BLOOD CHOLESTEROL ABNORMAL
     Dosage: 20 mg, QD
     Route: 048
  5. OMEPRAZOLE [Concomitant]
     Indication: GASTROOESOPHAGEAL REFLUX DISEASE
     Dosage: 20 mg, QD
     Route: 048
  6. FUROSEMIDE [Concomitant]
     Dosage: 40 mg, QID
     Route: 048
  7. HUMULIN N [Concomitant]
     Indication: DIABETES MELLITUS
     Dosage: 2 DF, BID (55 mg in the morning, 50 mg in the afternoon)
     Route: 048

REACTIONS (1)
  - Dehydration [Unknown]
